FAERS Safety Report 7979912-8 (Version None)
Quarter: 2011Q4

REPORT INFORMATION
  Report Type: 
  Country: None (occurrence: None)
  Receive Date: 20111214
  Receipt Date: 20111205
  Transmission Date: 20120403
  Serious: Yes (Hospitalization, Other)
  Sender: FDA-Public Use
  Company Number: JP-NAPPMUNDI-MAG-2011-0001926

PATIENT
  Age: 86 Year
  Sex: Female

DRUGS (3)
  1. BUPRENORPHINE [Suspect]
     Indication: SPINAL COLUMN STENOSIS
     Dosage: 5 MCG, Q1H
     Route: 062
     Dates: start: 20111006
  2. MOTILIUM [Suspect]
     Dosage: UNK
     Dates: start: 20110929
  3. BUPRENORPHINE [Suspect]
     Dosage: 5 MCG, Q1H
     Route: 062
     Dates: start: 20110929

REACTIONS (3)
  - SOMNOLENCE [None]
  - FALL [None]
  - FEMORAL NECK FRACTURE [None]
